FAERS Safety Report 12188162 (Version 2)
Quarter: 2016Q1

REPORT INFORMATION
  Report Type: Report from Study
  Country: US (occurrence: US)
  Receive Date: 20160317
  Receipt Date: 20160321
  Transmission Date: 20160526
  Serious: Yes (Other)
  Sender: FDA-Public Use
  Company Number: US-ABBVIE-16K-163-1581062-00

PATIENT
  Age: 68 Year
  Sex: Male
  Weight: 66.28 kg

DRUGS (2)
  1. HUMIRA [Suspect]
     Active Substance: ADALIMUMAB
     Indication: RHEUMATOID ARTHRITIS
     Route: 058
     Dates: start: 200901
  2. HUMIRA [Suspect]
     Active Substance: ADALIMUMAB
     Indication: FURUNCLE
     Route: 058
     Dates: end: 20160201

REACTIONS (4)
  - Pulmonary mass [Not Recovered/Not Resolved]
  - Exposure to chemical pollution [Unknown]
  - Lung infection [Not Recovered/Not Resolved]
  - Furuncle [Not Recovered/Not Resolved]

NARRATIVE: CASE EVENT DATE: 201602
